FAERS Safety Report 6524225-4 (Version None)
Quarter: 2009Q4

REPORT INFORMATION
  Report Type: 
  Country: None (occurrence: None)
  Receive Date: 20091231
  Receipt Date: 20091226
  Transmission Date: 20100525
  Serious: Yes (Disabling)
  Sender: FDA-Public Use
  Company Number: JP-GENENTECH-296346

PATIENT
  Sex: Male

DRUGS (2)
  1. RITUXAN [Suspect]
     Indication: MANTLE CELL LYMPHOMA
  2. ZEVALIN [Concomitant]
     Indication: MANTLE CELL LYMPHOMA

REACTIONS (1)
  - BLINDNESS UNILATERAL [None]
